FAERS Safety Report 4660802-3 (Version None)
Quarter: 2005Q2

REPORT INFORMATION
  Report Type: 
  Country: None (occurrence: None)
  Receive Date: 20050511
  Receipt Date: 20050502
  Transmission Date: 20051028
  Serious: Yes (Death, Other)
  Sender: FDA-Public Use
  Company Number: USA-2005-0019157

PATIENT
  Age: 28 Year
  Sex: Male

DRUGS (1)
  1. OXYCONTIN [Suspect]
     Dosage: MG

REACTIONS (5)
  - CYANOSIS [None]
  - OVERDOSE [None]
  - PERIPHERAL COLDNESS [None]
  - SELF-MEDICATION [None]
  - SNORING [None]
